FAERS Safety Report 11663732 (Version 1)
Quarter: 2015Q4

REPORT INFORMATION
  Report Type: Spontaneous
  Country: AU (occurrence: AU)
  Receive Date: 20151027
  Receipt Date: 20151027
  Transmission Date: 20160304
  Serious: Yes (Other)
  Sender: FDA-Public Use
  Company Number: AU-TOLMAR, INC.-2015AU009412

PATIENT
  Age: 77 Year
  Sex: Male

DRUGS (1)
  1. ELIGARD [Suspect]
     Active Substance: LEUPROLIDE ACETATE
     Indication: PROSTATE CANCER
     Dosage: 22.5 MG, Q3MONTHS
     Route: 065
     Dates: start: 20150424

REACTIONS (6)
  - Night sweats [Unknown]
  - Weight increased [Unknown]
  - Increased appetite [Unknown]
  - Bone pain [Unknown]
  - Hot flush [Unknown]
  - Colon cancer [Unknown]

NARRATIVE: CASE EVENT DATE: 2015
